FAERS Safety Report 4541064-4 (Version None)
Quarter: 2004Q4

REPORT INFORMATION
  Report Type: 
  Country: None (occurrence: None)
  Receive Date: 20041228
  Receipt Date: 20041213
  Transmission Date: 20050328
  Serious: No
  Sender: FDA-Public Use
  Company Number: 2004AC01033

PATIENT
  Age: 31 Year
  Sex: Female

DRUGS (1)
  1. BUPIVACAINE [Suspect]
     Indication: ANALGESIC EFFECT
     Dosage: FOR 18 HRS AFTER OPERATION

REACTIONS (4)
  - ASTHENIA [None]
  - MONONEUROPATHY [None]
  - POST PROCEDURAL COMPLICATION [None]
  - SENSORY LOSS [None]
